FAERS Safety Report 5325693-6 (Version None)
Quarter: 2007Q2

REPORT INFORMATION
  Report Type: 
  Country: None (occurrence: None)
  Receive Date: 20070509
  Receipt Date: 20070430
  Transmission Date: 20071010
  Serious: Yes (Other)
  Sender: FDA-Public Use
  Company Number: 013069

PATIENT
  Sex: 0

DRUGS (2)
  1. KETOCONAZOLE [Suspect]
     Indication: SYSTEMIC CANDIDA
     Dosage: SEE IMAGE
     Route: 048
     Dates: start: 19770101, end: 20070301
  2. KETOCONAZOLE [Suspect]
     Indication: SYSTEMIC CANDIDA
     Dosage: SEE IMAGE
     Route: 048
     Dates: start: 20070301

REACTIONS (6)
  - ANGIOPATHY [None]
  - AORTIC ANEURYSM [None]
  - CONDITION AGGRAVATED [None]
  - DRUG INEFFECTIVE [None]
  - PERNICIOUS ANAEMIA [None]
  - SLEEP DISORDER [None]
